FAERS Safety Report 4803349-3 (Version None)
Quarter: 2005Q4

REPORT INFORMATION
  Report Type: 
  Country: None (occurrence: None)
  Receive Date: 20051013
  Receipt Date: 20051005
  Transmission Date: 20060501
  Serious: Yes (Life-Threatening, Hospitalization)
  Sender: FDA-Public Use
  Company Number: 218366

PATIENT
  Age: 44 Year
  Sex: Female
  Weight: 59.9 kg

DRUGS (13)
  1. HERCEPTIN (TRASTUZUMAB) PWDR + SOLVENT, INFUSION SOLN, 440 MG [Suspect]
     Indication: BREAST CANCER METASTATIC
     Dosage: 2 MG/KG, 1/WEEK, INTRAVENOUS
     Route: 042
     Dates: start: 20040821, end: 20050920
  2. GEMZAR [Concomitant]
  3. PERCOCET - 5 (ACETAMINOPHEN, OXYCODONE HYDROCHLORIDE) [Concomitant]
  4. NEUPOGEN [Concomitant]
  5. RESTORIL [Concomitant]
  6. DILAUDID [Concomitant]
  7. XANAX [Concomitant]
  8. PHENERGAN [Concomitant]
  9. LEXARO (ESCITALOPRAM OXALATE) [Concomitant]
  10. PROTONIX [Concomitant]
  11. ZOFRAN [Concomitant]
  12. AREDIA [Concomitant]
  13. DEPOCYTE (CYTARABINE) [Concomitant]

REACTIONS (5)
  - DIFFICULT TO WEAN FROM VENTILATOR [None]
  - DIFFUSE ALVEOLAR DAMAGE [None]
  - PNEUMONIA [None]
  - PULMONARY CAVITATION [None]
  - PULMONARY FIBROSIS [None]
